FAERS Safety Report 20860105 (Version 1)
Quarter: 2022Q2

REPORT INFORMATION
  Report Type: Spontaneous
  Country: US (occurrence: None)
  Receive Date: 20220520
  Receipt Date: 20220520
  Transmission Date: 20220720
  Serious: No
  Sender: FDA-Public Use
  Company Number: None

PATIENT
  Age: 75 Year
  Sex: Female

DRUGS (1)
  1. IMATINIB MESYLATE [Suspect]
     Active Substance: IMATINIB MESYLATE
     Indication: Gastrointestinal stromal tumour
     Dosage: OTHER QUANTITY : 200MG/100MG;?FREQUENCY : TWICE A DAY;?
     Route: 048
     Dates: start: 202105

REACTIONS (2)
  - Pulmonary oedema [None]
  - Fatigue [None]

NARRATIVE: CASE EVENT DATE: 20220520
